FAERS Safety Report 5710413-3 (Version None)
Quarter: 2008Q2

REPORT INFORMATION
  Report Type: 
  Country: None (occurrence: None)
  Receive Date: 20080418
  Receipt Date: 20080408
  Transmission Date: 20081010
  Serious: Yes (Death, Other)
  Sender: FDA-Public Use
  Company Number: NL-PFIZER INC-2008032214

PATIENT
  Sex: Male
  Weight: 90 kg

DRUGS (2)
  1. LYRICA [Suspect]
     Indication: HERPES ZOSTER
     Route: 048
     Dates: start: 20080320, end: 20080325
  2. NEXIUM [Concomitant]

REACTIONS (2)
  - DEATH [None]
  - VOMITING [None]
